FAERS Safety Report 11990959 (Version 9)
Quarter: 2018Q2

REPORT INFORMATION
  Report Type: Report from Study
  Country: CN (occurrence: CN)
  Receive Date: 20160202
  Receipt Date: 20180601
  Transmission Date: 20180711
  Serious: Yes (Other)
  Sender: FDA-Public Use
  Company Number: PHHY2015CN142369

PATIENT
  Age: 58 Year
  Sex: Male
  Weight: 58.7 kg

DRUGS (120)
  1. METHYLPREDNISOLONE. [Suspect]
     Active Substance: METHYLPREDNISOLONE
     Dosage: 400 MG, QD
     Route: 065
     Dates: start: 20151231, end: 20160104
  2. BASILIXIMAB [Suspect]
     Active Substance: BASILIXIMAB
     Indication: RENAL TRANSPLANT
     Dosage: 20 MG, QD
     Route: 065
     Dates: start: 20150911, end: 20150911
  3. PREDNISONE ACETATE [Concomitant]
     Active Substance: PREDNISONE ACETATE
     Dosage: 30 MG, QD
     Route: 065
     Dates: start: 20151005
  4. ALBUMIN HUMAN [Concomitant]
     Active Substance: ALBUMIN HUMAN
     Dosage: 12500 MG,QD
     Route: 042
     Dates: start: 20151005, end: 20151005
  5. ADALAT [Concomitant]
     Active Substance: NIFEDIPINE
     Dosage: 300 MG, BID
     Route: 065
  6. BUTIOL//DEXAMETHASONE SODIUM PHOSPHATE [Concomitant]
     Indication: ANTIINFLAMMATORY THERAPY
     Dosage: 5 MG, QD
     Route: 042
     Dates: start: 20150911, end: 20150911
  7. BUTIOL//DEXAMETHASONE SODIUM PHOSPHATE [Concomitant]
     Indication: HYPERSENSITIVITY
  8. PANTOPRAZOLE [Concomitant]
     Active Substance: PANTOPRAZOLE
     Dosage: 40 MG, QD
     Route: 048
     Dates: start: 20151005, end: 20151102
  9. AMCAL VITAMIN C [Concomitant]
     Indication: VITAMIN C DEFICIENCY
     Dosage: 1000 MG, QD
     Route: 042
     Dates: start: 20150908, end: 20150916
  10. SULODEXIDE [Concomitant]
     Active Substance: SULODEXIDE
     Dosage: 250 LSU, BID
     Route: 048
     Dates: start: 20151202
  11. NIFEDIPINE. [Concomitant]
     Active Substance: NIFEDIPINE
     Indication: HYPERTENSION
     Dosage: 0.03 G, QD
     Route: 048
     Dates: start: 20150910, end: 20151004
  12. NIFEDIPINE. [Concomitant]
     Active Substance: NIFEDIPINE
     Dosage: 0.3 G, BID
     Route: 065
     Dates: start: 20151005
  13. FUROSEMIDE. [Concomitant]
     Active Substance: FUROSEMIDE
     Indication: POLYURIA
     Dosage: 20 MG, BID
     Route: 042
     Dates: start: 20150923, end: 20150923
  14. FUROSEMIDE. [Concomitant]
     Active Substance: FUROSEMIDE
     Indication: PROPHYLAXIS
     Dosage: 20 MG, QD
     Route: 042
     Dates: start: 20151004, end: 20151004
  15. FUROSEMIDE. [Concomitant]
     Active Substance: FUROSEMIDE
     Dosage: 40 MG, QD
     Route: 065
     Dates: start: 20150908, end: 20150910
  16. FUROSEMIDE. [Concomitant]
     Active Substance: FUROSEMIDE
     Dosage: 30 MG, QD
     Route: 042
     Dates: start: 20150908, end: 20150908
  17. AMBROXOL HYDROCHLORIDE [Concomitant]
     Active Substance: AMBROXOL HYDROCHLORIDE
     Indication: PROPHYLAXIS
     Dosage: 15 MG, BID
     Route: 055
     Dates: start: 20150908, end: 20151004
  18. AMBROXOL HYDROCHLORIDE [Concomitant]
     Active Substance: AMBROXOL HYDROCHLORIDE
     Indication: PRODUCTIVE COUGH
     Dosage: 15 MG, BID
     Route: 055
     Dates: start: 20151005
  19. SULFAMETHOXAZOLE [Concomitant]
     Active Substance: SULFAMETHOXAZOLE
     Indication: LUNG INFECTION
     Dosage: 960 MG, TID
     Route: 042
     Dates: start: 20151231
  20. CASPOFUNGIN ACETATE. [Concomitant]
     Active Substance: CASPOFUNGIN ACETATE
     Indication: LUNG INFECTION
     Dosage: 50 MG, QD
     Route: 042
     Dates: start: 20151231
  21. MYCOPHENOLATE SODIUM [Concomitant]
     Active Substance: MYCOPHENOLATE SODIUM
     Indication: PRODUCT USED FOR UNKNOWN INDICATION
     Dosage: 1440 MG/DL, UNK
     Route: 065
     Dates: start: 20150908, end: 20150911
  22. LIGUSTRAZINE [Concomitant]
     Active Substance: TETRAMETHYLPYRAZINE
     Indication: HYPERTENSION
     Dosage: 0.1 MG, BID
     Route: 048
     Dates: start: 20151005, end: 20151005
  23. METHYLPREDNISOLONE W/SUCCINATE SODIUM [Concomitant]
     Active Substance: METHYLPREDNISOLONE SODIUM SUCCINATE
     Indication: ANTIALLERGIC THERAPY
     Dosage: 300 MG, QD
     Route: 065
     Dates: start: 20150919, end: 20150920
  24. CALCII CHLORIDUM//CALCIUM CHLORIDE [Concomitant]
     Dosage: 4000 UNK, UNK
     Route: 042
     Dates: start: 20150920, end: 20150920
  25. SULODEXIDE [Concomitant]
     Active Substance: SULODEXIDE
     Dosage: 1 DF, BID
     Route: 048
     Dates: start: 20150910, end: 20150926
  26. SULODEXIDE [Concomitant]
     Active Substance: SULODEXIDE
     Dosage: 1 DF, BID
     Route: 048
     Dates: start: 20150926, end: 20150926
  27. SULODEXIDE [Concomitant]
     Active Substance: SULODEXIDE
     Dosage: 1 DF, BID
     Route: 048
     Dates: start: 20151005, end: 20151102
  28. FUROSEMIDE. [Concomitant]
     Active Substance: FUROSEMIDE
     Dosage: 20 MG, BID
     Route: 042
     Dates: start: 20151003, end: 20151003
  29. FUROSEMIDE. [Concomitant]
     Active Substance: FUROSEMIDE
     Dosage: 40 MG, QD
     Route: 042
     Dates: start: 20150923, end: 20150923
  30. MYFORTIC [Suspect]
     Active Substance: MYCOPHENOLATE SODIUM
     Indication: RENAL TRANSPLANT
     Dosage: 1440 MG, QD
     Route: 065
     Dates: start: 20150908, end: 20150911
  31. MYFORTIC [Suspect]
     Active Substance: MYCOPHENOLATE SODIUM
     Dosage: 1080 MG, QD
     Route: 065
     Dates: start: 20150913, end: 20151005
  32. MYFORTIC [Suspect]
     Active Substance: MYCOPHENOLATE SODIUM
     Dosage: 1080 MG, QD
     Route: 065
     Dates: start: 20151005, end: 20151005
  33. METHYLPREDNISOLONE. [Suspect]
     Active Substance: METHYLPREDNISOLONE
     Dosage: 400 MG, QD
     Route: 065
     Dates: start: 20150918, end: 20150918
  34. CICLOSPORIN [Suspect]
     Active Substance: CYCLOSPORINE
     Dosage: 200 MG, QD
     Route: 065
     Dates: start: 20151202, end: 20151218
  35. PREDNISONE. [Suspect]
     Active Substance: PREDNISONE
     Indication: KIDNEY TRANSPLANT REJECTION
     Dosage: 30 MG, QD
     Route: 065
     Dates: start: 20150913, end: 20151004
  36. ALBUMIN HUMAN [Concomitant]
     Active Substance: ALBUMIN HUMAN
     Indication: PROPHYLAXIS
     Dosage: 12500 MG, QD
     Route: 042
     Dates: start: 20150923, end: 20150928
  37. ALBUMIN HUMAN [Concomitant]
     Active Substance: ALBUMIN HUMAN
     Dosage: 12500 MG, QD
     Route: 042
     Dates: start: 20151007, end: 20151014
  38. METHYLPREDNISOLONE W/SUCCINATE SODIUM [Concomitant]
     Active Substance: METHYLPREDNISOLONE SODIUM SUCCINATE
     Indication: ANTIINFLAMMATORY THERAPY
     Dosage: 500 MG, QD
     Route: 065
     Dates: start: 20150908, end: 20150911
  39. METOPROLOL TARTRATE. [Concomitant]
     Active Substance: METOPROLOL TARTRATE
     Indication: HYPERTENSION
     Dosage: 25 MG, BID
     Route: 048
     Dates: start: 20150909, end: 20151004
  40. ALOSTIN//ALPROSTADIL [Concomitant]
     Indication: HYPERTENSION
     Dosage: 0.02 MG, BID
     Route: 065
     Dates: start: 20151001, end: 20151001
  41. DOXAZIN//DOXAZOSIN MESILATE [Concomitant]
     Dosage: 4 MG, BID
     Route: 048
     Dates: start: 20151202
  42. PANTOPRAZOLE [Concomitant]
     Active Substance: PANTOPRAZOLE
     Indication: PROPHYLAXIS
     Dosage: 40 MG, QD
     Route: 048
     Dates: start: 20150927, end: 20151004
  43. CALCII CHLORIDUM//CALCIUM CHLORIDE [Concomitant]
     Indication: SUPPLEMENTATION THERAPY
     Dosage: 3000 MG, QD
     Route: 042
     Dates: start: 20150915, end: 20150915
  44. CEFOPERAZONE SODIUM W/SULBACTAM [Concomitant]
     Active Substance: CEFOPERAZONE SODIUM\SULBACTAM
     Indication: PROPHYLAXIS
     Dosage: 2 G, BID
     Route: 042
     Dates: start: 20150908, end: 20150921
  45. MYCOPHENOLATE SODIUM [Concomitant]
     Active Substance: MYCOPHENOLATE SODIUM
     Dosage: 1080 MG/DL, UNK
     Route: 065
     Dates: start: 20150913, end: 20151005
  46. MYCOPHENOLATE SODIUM [Concomitant]
     Active Substance: MYCOPHENOLATE SODIUM
     Dosage: 1120 MG/DL, UNK
     Route: 065
     Dates: start: 20150911, end: 20150913
  47. METHYLPREDNISOLONE. [Suspect]
     Active Substance: METHYLPREDNISOLONE
     Indication: KIDNEY TRANSPLANT REJECTION
     Dosage: 500 MG, QD
     Route: 065
     Dates: start: 20150908, end: 20150911
  48. METHYLPREDNISOLONE. [Suspect]
     Active Substance: METHYLPREDNISOLONE
     Dosage: 300 MG, QD
     Route: 065
     Dates: start: 20150919, end: 20150920
  49. SODIUM BICARBONATE. [Concomitant]
     Active Substance: SODIUM BICARBONATE
     Indication: ACID BASE BALANCE
  50. ADVACAL//CALCIUM [Concomitant]
     Dosage: 4000 MG, QD
     Route: 041
     Dates: start: 20150917, end: 20150917
  51. EDOSTENE [Concomitant]
     Indication: CONSTIPATION
     Dosage: 1200 MG, QD
     Route: 048
     Dates: start: 20150910, end: 20151004
  52. CALCII CHLORIDUM//CALCIUM CHLORIDE [Concomitant]
     Dosage: 4000 MG, QD
     Route: 065
     Dates: start: 20150920, end: 20150920
  53. SULODEXIDE [Concomitant]
     Active Substance: SULODEXIDE
     Indication: THROMBOSIS
     Dosage: 250 LSU, BID
     Route: 065
     Dates: start: 20150910
  54. SULODEXIDE [Concomitant]
     Active Substance: SULODEXIDE
     Indication: PROPHYLAXIS
     Dosage: 250 LSU, BID
     Route: 065
     Dates: start: 20151005
  55. ULINASTATIN [Concomitant]
     Active Substance: ULINASTATIN
     Indication: PROPHYLAXIS
     Dosage: 20 WU, QD
     Route: 042
     Dates: start: 20150909, end: 20150930
  56. NITROGLYCERIN. [Concomitant]
     Active Substance: NITROGLYCERIN
     Indication: PROPHYLAXIS
     Dosage: 10 MG, QD
     Route: 042
     Dates: start: 20150908, end: 20150909
  57. NIFEDIPINE. [Concomitant]
     Active Substance: NIFEDIPINE
     Dosage: 300 MG, BID
     Route: 048
     Dates: start: 20151202
  58. DOPAMINE [Concomitant]
     Active Substance: DOPAMINE\DOPAMINE HYDROCHLORIDE
     Indication: PROPHYLAXIS
     Dosage: 20 MG, QD
     Route: 042
     Dates: start: 20150910, end: 20150910
  59. INSULIN [Concomitant]
     Active Substance: INSULIN NOS
     Indication: BLOOD GLUCOSE ABNORMAL
     Dosage: 4 IU, BID
     Route: 042
     Dates: start: 20150908, end: 20150909
  60. AMPHOTERICIN B. [Concomitant]
     Active Substance: AMPHOTERICIN B
     Indication: ANTIFUNGAL PROPHYLAXIS
     Dosage: 10 MG, QD
     Route: 042
     Dates: start: 20150908, end: 20150921
  61. LANSOPRAZOLE. [Concomitant]
     Active Substance: LANSOPRAZOLE
     Indication: DUODENAL ULCER
     Dosage: 30 MG, QD
     Route: 065
     Dates: start: 20150908, end: 20150908
  62. LANSOPRAZOLE. [Concomitant]
     Active Substance: LANSOPRAZOLE
     Indication: HAEMORRHAGE
  63. FUROSEMIDE. [Concomitant]
     Active Substance: FUROSEMIDE
     Dosage: 200 MG, QD
     Route: 042
     Dates: start: 20150910, end: 20150910
  64. AMBROXOL [Concomitant]
     Active Substance: AMBROXOL
     Indication: PROPHYLAXIS
     Dosage: 15 MG, BID
     Route: 065
  65. CEFOPERAZONE SODIUM W/TAZOBACTAM [Concomitant]
     Indication: PRODUCT USED FOR UNKNOWN INDICATION
     Dosage: 2 G, BID
     Route: 065
     Dates: start: 20150908
  66. AMPHOTERICIN B, LIPOSOME [Concomitant]
     Active Substance: AMPHOTERICIN B
     Dosage: 15 MG, QD
     Route: 042
     Dates: start: 20160106, end: 20160108
  67. MEROPENEM. [Concomitant]
     Active Substance: MEROPENEM
     Indication: LUNG INFECTION
     Dosage: 500 MG, TID
     Route: 042
     Dates: start: 20151231, end: 20160104
  68. PREDNISONE. [Suspect]
     Active Substance: PREDNISONE
     Indication: ANTIINFLAMMATORY THERAPY
     Dosage: 60 MG, QD
     Route: 065
     Dates: start: 20151005, end: 20151201
  69. PREDNISONE ACETATE [Concomitant]
     Active Substance: PREDNISONE ACETATE
     Indication: PRODUCT USED FOR UNKNOWN INDICATION
     Dosage: 30 MG, QD
     Route: 065
     Dates: start: 20150913
  70. IPRATROPIUM BROMIDE. [Concomitant]
     Active Substance: IPRATROPIUM BROMIDE
     Indication: PROPHYLAXIS
     Dosage: 0.5 MG, BID
     Route: 055
     Dates: start: 20150908, end: 20151004
  71. METOPROLOL TARTRATE. [Concomitant]
     Active Substance: METOPROLOL TARTRATE
     Dosage: 25 MG, BID
     Route: 048
     Dates: start: 20151202
  72. ALOSTIN//ALPROSTADIL [Concomitant]
     Dosage: 0.01 MG, BID
     Route: 065
     Dates: start: 20151005, end: 20151005
  73. DOXAZIN//DOXAZOSIN MESILATE [Concomitant]
     Indication: HYPERTENSION
     Dosage: 4 MG, BID
     Route: 048
     Dates: start: 20150917, end: 20150917
  74. CALCII CHLORIDUM//CALCIUM CHLORIDE [Concomitant]
     Dosage: 4000 MG, QD
     Route: 042
     Dates: start: 20150917, end: 20150917
  75. FUROSEMIDE. [Concomitant]
     Active Substance: FUROSEMIDE
     Dosage: 20 MG, BID
     Route: 042
     Dates: start: 20150927, end: 20150927
  76. AK-DEX//DEXAMETHASONE SODIUM PHOSPHATE [Concomitant]
     Indication: ALLERGY PROPHYLAXIS
     Dosage: 5 MG, QD
     Route: 042
     Dates: start: 20150911, end: 20150911
  77. MYCOPHENOLATE SODIUM [Concomitant]
     Active Substance: MYCOPHENOLATE SODIUM
     Dosage: 720 MG/DL, UNK
     Route: 065
     Dates: start: 20151005, end: 20151201
  78. MYFORTIC [Suspect]
     Active Substance: MYCOPHENOLATE SODIUM
     Indication: PROPHYLAXIS AGAINST TRANSPLANT REJECTION
     Dosage: 1120 MG, QD
     Route: 065
     Dates: start: 20150911, end: 20150913
  79. MYFORTIC [Suspect]
     Active Substance: MYCOPHENOLATE SODIUM
     Dosage: 720 MG, QD
     Route: 065
     Dates: start: 20151005, end: 20151201
  80. IPRATROPIUM BROMIDE. [Concomitant]
     Active Substance: IPRATROPIUM BROMIDE
     Dosage: 0.5 MG, BID
     Route: 055
     Dates: start: 20151005, end: 20151102
  81. PHENTOLAMINE MESILATE [Concomitant]
     Indication: HYPERTENSION
     Dosage: 5 MG, QD
     Route: 042
     Dates: start: 20150910, end: 20150910
  82. METHYLPREDNISOLONE W/SUCCINATE SODIUM [Concomitant]
     Active Substance: METHYLPREDNISOLONE SODIUM SUCCINATE
     Indication: IMMUNOSUPPRESSION
  83. METOPROLOL TARTRATE. [Concomitant]
     Active Substance: METOPROLOL TARTRATE
     Dosage: 25 MG, BID
     Route: 048
     Dates: start: 20151005, end: 20151102
  84. LACTULOSA [Concomitant]
     Active Substance: LACTULOSE
     Indication: CONSTIPATION PROPHYLAXIS
     Dosage: 66700 MG, QD
     Route: 048
     Dates: start: 20151009, end: 20151009
  85. AMCAL VITAMIN C [Concomitant]
     Indication: NUTRITIONAL SUPPLEMENTATION
     Dosage: 2000 MG, QD
     Route: 042
     Dates: start: 20150908, end: 20150916
  86. FUROSEMIDE. [Concomitant]
     Active Substance: FUROSEMIDE
     Indication: ACUTE KIDNEY INJURY
     Dosage: 40 MG, BID
     Route: 042
     Dates: start: 20150921, end: 20150921
  87. FUROSEMIDE. [Concomitant]
     Active Substance: FUROSEMIDE
     Dosage: 20 MG, BID
     Route: 042
     Dates: start: 20150925, end: 20150925
  88. FUROSEMIDE. [Concomitant]
     Active Substance: FUROSEMIDE
     Dosage: 20 MG, QD
     Route: 042
     Dates: start: 20150920, end: 20150920
  89. AMPHOTERICIN B, LIPOSOME [Concomitant]
     Active Substance: AMPHOTERICIN B
     Dosage: 20 MG, QD
     Route: 042
     Dates: start: 20160109
  90. SODIUM BICARBONATE. [Concomitant]
     Active Substance: SODIUM BICARBONATE
     Indication: NUTRITIONAL SUPPLEMENTATION
     Dosage: 150 ML, QD
     Route: 042
     Dates: start: 20150908, end: 20150916
  91. ADALAT [Concomitant]
     Active Substance: NIFEDIPINE
     Indication: HYPERTENSION
     Dosage: 30 MG, QD
     Route: 065
  92. BUTIOL//DEXAMETHASONE SODIUM PHOSPHATE [Concomitant]
     Indication: IMMUNOSUPPRESSION
  93. ALOSTIN//ALPROSTADIL [Concomitant]
     Indication: THROMBOSIS PROPHYLAXIS
     Dosage: 10 MG, BID
     Route: 042
     Dates: start: 20150909, end: 20150921
  94. DOXAZIN//DOXAZOSIN MESILATE [Concomitant]
     Dosage: 4 MG, BID
     Route: 048
     Dates: start: 20151005, end: 20151102
  95. NIFEDIPINE. [Concomitant]
     Active Substance: NIFEDIPINE
     Dosage: 10 MG, QD
     Route: 048
     Dates: start: 20150912, end: 20150912
  96. AMPHOTERICIN B, LIPOSOME [Concomitant]
     Active Substance: AMPHOTERICIN B
     Indication: LUNG INFECTION
     Dosage: 10 MG, QD
     Route: 042
     Dates: start: 20151231, end: 20160106
  97. MYCOPHENOLATE SODIUM [Concomitant]
     Active Substance: MYCOPHENOLATE SODIUM
     Dosage: 720 MG/DL, UNK
     Route: 065
     Dates: start: 20151202
  98. MYFORTIC [Suspect]
     Active Substance: MYCOPHENOLATE SODIUM
     Dosage: 720 MG, QD
     Route: 065
     Dates: start: 20151202
  99. CICLOSPORIN [Suspect]
     Active Substance: CYCLOSPORINE
     Indication: PRODUCT USED FOR UNKNOWN INDICATION
     Dosage: 200 MG, QD
     Route: 065
     Dates: start: 20150908, end: 20151005
  100. PREDNISONE. [Suspect]
     Active Substance: PREDNISONE
     Indication: IMMUNOSUPPRESSION
     Dosage: 20 MG, QD
     Route: 065
     Dates: start: 20151231, end: 20160104
  101. ALBUMIN HUMAN [Concomitant]
     Active Substance: ALBUMIN HUMAN
     Indication: NUTRITIONAL SUPPLEMENTATION
     Dosage: 12500 MG, QD
     Route: 042
     Dates: start: 20151002, end: 20151004
  102. SODIUM BICARBONATE. [Concomitant]
     Active Substance: SODIUM BICARBONATE
     Indication: PROPHYLAXIS
     Dosage: 1500 MG, BID
     Route: 048
     Dates: start: 20151202, end: 20151230
  103. LIGUSTRAZINE [Concomitant]
     Active Substance: TETRAMETHYLPYRAZINE
     Indication: PROPHYLAXIS
     Dosage: 120 MG, QD
     Route: 042
     Dates: start: 20150921, end: 20151004
  104. INOSINE [Concomitant]
     Active Substance: INOSINE
     Indication: NUTRITIONAL SUPPLEMENTATION
     Dosage: 1000 MG, QD
     Route: 042
     Dates: start: 20150908, end: 20150916
  105. METHYLPREDNISOLONE W/SUCCINATE SODIUM [Concomitant]
     Active Substance: METHYLPREDNISOLONE SODIUM SUCCINATE
     Indication: PROPHYLAXIS AGAINST TRANSPLANT REJECTION
     Dosage: 400 MG, QD
     Route: 065
     Dates: start: 20150918, end: 20150918
  106. DOXAZIN//DOXAZOSIN MESILATE [Concomitant]
     Dosage: 4 MG, BID
     Route: 048
     Dates: start: 20150917, end: 20151004
  107. ADVACAL//CALCIUM [Concomitant]
     Indication: MINERAL SUPPLEMENTATION
     Dosage: 3000 MG, QD
     Route: 041
     Dates: start: 20150915, end: 20150915
  108. ADVACAL//CALCIUM [Concomitant]
     Dosage: 4000 MG, QD
     Route: 042
     Dates: start: 20150920, end: 20150920
  109. PANTOPRAZOLE [Concomitant]
     Active Substance: PANTOPRAZOLE
     Dosage: 40 MG, QD
     Route: 048
     Dates: start: 20151202
  110. FUROSEMIDE. [Concomitant]
     Active Substance: FUROSEMIDE
     Indication: HYPERTENSION
     Dosage: 40 MG, BID
     Route: 042
  111. FUROSEMIDE. [Concomitant]
     Active Substance: FUROSEMIDE
     Dosage: 20 MG, BID
     Route: 042
     Dates: start: 20151005, end: 20151024
  112. FUROSEMIDE. [Concomitant]
     Active Substance: FUROSEMIDE
     Dosage: 20 MG, BID
     Route: 042
     Dates: start: 20150919, end: 20150919
  113. CARDURA [Concomitant]
     Active Substance: DOXAZOSIN MESYLATE
     Indication: HYPERTENSION
     Dosage: 4 MG, BID
     Route: 065
     Dates: start: 20151005
  114. ALLOPURINOL. [Concomitant]
     Active Substance: ALLOPURINOL
     Indication: PROPHYLAXIS
     Dosage: 1000 MG, BID
     Route: 048
     Dates: start: 20151202
  115. MYCOPHENOLATE SODIUM [Concomitant]
     Active Substance: MYCOPHENOLATE SODIUM
     Dosage: 1080 MG/DL, UNK
     Route: 065
     Dates: start: 20151005, end: 20151005
  116. BASILIXIMAB [Suspect]
     Active Substance: BASILIXIMAB
     Indication: PROPHYLAXIS AGAINST TRANSPLANT REJECTION
     Dosage: 20 MG, QD
     Route: 065
     Dates: start: 20150908, end: 20150908
  117. CICLOSPORIN [Suspect]
     Active Substance: CYCLOSPORINE
     Dosage: 250 MG, QD
     Route: 065
     Dates: start: 20151005, end: 20151201
  118. CICLOSPORIN [Suspect]
     Active Substance: CYCLOSPORINE
     Dosage: 175 MG, QD
     Route: 065
     Dates: start: 20151218, end: 20151230
  119. PREDNISONE. [Suspect]
     Active Substance: PREDNISONE
     Indication: ANTIALLERGIC THERAPY
     Dosage: 20 MG, QD
     Route: 065
     Dates: start: 20151202, end: 20151230
  120. OMEPRAZOLE SODIUM [Concomitant]
     Active Substance: OMEPRAZOLE SODIUM
     Indication: GASTRIC ULCER
     Dosage: 40 MG, QD
     Route: 042
     Dates: start: 20150908, end: 20150926

REACTIONS (8)
  - Abdominal distension [Recovering/Resolving]
  - Constipation [Recovering/Resolving]
  - Cytomegalovirus infection [Recovered/Resolved]
  - Fatigue [Recovering/Resolving]
  - Kidney transplant rejection [Recovered/Resolved]
  - Cytomegalovirus infection [Recovered/Resolved]
  - Urine output decreased [Recovered/Resolved]
  - Pain [Unknown]

NARRATIVE: CASE EVENT DATE: 20150912
